FAERS Safety Report 10180394 (Version 2)
Quarter: 2014Q2

REPORT INFORMATION
  Report Type: Spontaneous
  Country: US (occurrence: US)
  Receive Date: 20140519
  Receipt Date: 20140519
  Transmission Date: 20141212
  Serious: No
  Sender: FDA-Public Use
  Company Number: US-AMGEN INC.-USASP2013071521

PATIENT
  Age: 82 Year
  Sex: Female

DRUGS (9)
  1. PROLIA [Suspect]
     Indication: PRODUCT USED FOR UNKNOWN INDICATION
     Dosage: 60 MG, UNK
     Route: 058
  2. CALCIUM [Concomitant]
     Route: 065
  3. VITAMIN D                          /00107901/ [Concomitant]
     Route: 065
  4. LEVOTHYROXIN [Concomitant]
     Route: 065
  5. GABAPENTIN [Concomitant]
     Route: 065
  6. LISINOPRIL [Concomitant]
     Route: 065
  7. OMEPRAZOLE [Concomitant]
     Route: 065
  8. VITAMIN B12                        /00056201/ [Concomitant]
     Route: 065
  9. ALBUTEROL                          /00139501/ [Concomitant]
     Route: 065

REACTIONS (1)
  - Blood calcium decreased [Unknown]
